FAERS Safety Report 4379091-2 (Version None)
Quarter: 2004Q2

REPORT INFORMATION
  Report Type: 
  Country: None (occurrence: None)
  Receive Date: 20040610
  Receipt Date: 20040602
  Transmission Date: 20050107
  Serious: Yes (Life-Threatening)
  Sender: FDA-Public Use
  Company Number: 2004AP02966

PATIENT
  Age: 64 Year
  Sex: Female

DRUGS (1)
  1. TENORMIN [Suspect]

REACTIONS (1)
  - HEPATITIS FULMINANT [None]
